FAERS Safety Report 9606948 (Version 1)
Quarter: 2013Q4

REPORT INFORMATION
  Report Type: Spontaneous
  Country: US (occurrence: US)
  Receive Date: 20131008
  Receipt Date: 20131008
  Transmission Date: 20140711
  Serious: Yes (Hospitalization)
  Sender: FDA-Public Use
  Company Number: US-ROCHE-1285801

PATIENT
  Sex: Female

DRUGS (3)
  1. CLONAZEPAM [Suspect]
     Indication: PRODUCT USED FOR UNKNOWN INDICATION
     Route: 065
     Dates: end: 20120720
  2. KEPPRA [Concomitant]
     Route: 065
     Dates: end: 20120719
  3. FOLINIC ACID [Concomitant]
     Route: 065
     Dates: end: 20120721

REACTIONS (1)
  - Convulsion [Recovering/Resolving]
